FAERS Safety Report 7481170-8 (Version None)
Quarter: 2011Q2

REPORT INFORMATION
  Report Type: 
  Country: None (occurrence: None)
  Receive Date: 20110512
  Receipt Date: 20110512
  Transmission Date: 20111010
  Serious: Yes (Hospitalization, Disabling, Other)
  Sender: FDA-Public Use
  Company Number: None

PATIENT
  Sex: Female
  Weight: 108.8633 kg

DRUGS (2)
  1. REGLAN [Suspect]
     Indication: NAUSEA
     Dosage: 10MG. 2X TIMES A DAY
     Dates: start: 19900101, end: 20090101
  2. REGLAN [Suspect]
     Indication: GASTROOESOPHAGEAL REFLUX DISEASE
     Dosage: 10MG. 2X TIMES A DAY
     Dates: start: 19900101, end: 20090101

REACTIONS (11)
  - RESTLESS LEGS SYNDROME [None]
  - DEPRESSION [None]
  - FALL [None]
  - NAUSEA [None]
  - MOVEMENT DISORDER [None]
  - SKIN TIGHTNESS [None]
  - TYPE 2 DIABETES MELLITUS [None]
  - CONSTIPATION [None]
  - TENSION [None]
  - HYPOAESTHESIA [None]
  - ABASIA [None]
